FAERS Safety Report 5620089-1 (Version None)
Quarter: 2008Q1

REPORT INFORMATION
  Report Type: 
  Country: None (occurrence: None)
  Receive Date: 20080208
  Receipt Date: 20080205
  Transmission Date: 20080703
  Serious: Yes (Hospitalization)
  Sender: FDA-Public Use
  Company Number: US-MERCK-0712USA08589

PATIENT
  Age: 25 Year
  Sex: Female

DRUGS (1)
  1. ISENTRESS [Suspect]
     Route: 048
     Dates: start: 20071001

REACTIONS (2)
  - GRAND MAL CONVULSION [None]
  - MALAISE [None]
